FAERS Safety Report 15660189 (Version 1)
Quarter: 2018Q4

REPORT INFORMATION
  Report Type: Spontaneous
  Country: US (occurrence: US)
  Receive Date: 20181115
  Receipt Date: 20181115
  Transmission Date: 20190205
  Serious: Yes (Death)
  Sender: FDA-Public Use
  Company Number: None

PATIENT
  Age: 74 Year
  Sex: Male
  Weight: 73 kg

DRUGS (2)
  1. VISIPAQUE [Suspect]
     Active Substance: IODIXANOL
     Indication: ATHERECTOMY
     Route: 042
     Dates: start: 20180918, end: 20180918
  2. VISIPAQUE [Concomitant]
     Active Substance: IODIXANOL
     Dates: start: 20180918, end: 20180918

REACTIONS (7)
  - Contrast media reaction [None]
  - Ventricular fibrillation [None]
  - Therapy non-responder [None]
  - Cyanosis [None]
  - Bronchospasm [None]
  - Bradycardia [None]
  - Hypotension [None]

NARRATIVE: CASE EVENT DATE: 20180918
